FAERS Safety Report 7082473-1 (Version None)
Quarter: 2010Q3

REPORT INFORMATION
  Report Type: 
  Country: None (occurrence: None)
  Receive Date: 20100929
  Receipt Date: 20100709
  Transmission Date: 20110219
  Serious: No
  Sender: FDA-Public Use
  Company Number: US-WYE-H16420710

PATIENT
  Age: 22 Year
  Sex: Male

DRUGS (2)
  1. PRISTIQ [Suspect]
     Indication: PRODUCT USED FOR UNKNOWN INDICATION
     Dosage: ONCE DAILY
     Dates: start: 20100622, end: 20100701
  2. SUBOXONE [Concomitant]

REACTIONS (4)
  - DRUG SCREEN FALSE POSITIVE [None]
  - FEELING JITTERY [None]
  - INTENTIONAL DRUG MISUSE [None]
  - RESTLESSNESS [None]
